FAERS Safety Report 8959840 (Version 1)
Quarter: 2012Q4

REPORT INFORMATION
  Report Type: 
  Country: US (occurrence: US)
  Receive Date: 20121212
  Receipt Date: 20121212
  Transmission Date: 20130627
  Serious: Yes (Other)
  Sender: FDA-Public Use
  Company Number: US-009507513-1212USA003628

PATIENT
  Age: 76 Year
  Sex: Male

DRUGS (2)
  1. INVANZ [Suspect]
     Indication: URINARY TRACT INFECTION
     Dosage: 1gram daily
     Route: 017
     Dates: start: 201210, end: 201210
  2. FLOMAX (MORNIFLUMATE) [Concomitant]

REACTIONS (1)
  - Convulsion [Recovered/Resolved]
